FAERS Safety Report 7525880-2 (Version None)
Quarter: 2011Q2

REPORT INFORMATION
  Report Type: 
  Country: None (occurrence: None)
  Receive Date: 20110606
  Receipt Date: 20110526
  Transmission Date: 20111010
  Serious: Yes (Other)
  Sender: FDA-Public Use
  Company Number: A0930147A

PATIENT
  Sex: Female
  Weight: 75 kg

DRUGS (4)
  1. VENTOLIN HFA [Suspect]
     Indication: COUGH
     Route: 055
     Dates: start: 20110524, end: 20110524
  2. LEVOTHYROXINE SODIUM [Concomitant]
  3. ALPLAX [Concomitant]
  4. ROSUVASTATIN [Concomitant]

REACTIONS (2)
  - AGEUSIA [None]
  - ANOSMIA [None]
